FAERS Safety Report 15748086 (Version 1)
Quarter: 2018Q4

REPORT INFORMATION
  Report Type: Spontaneous
  Country: GB (occurrence: GB)
  Receive Date: 20181221
  Receipt Date: 20181221
  Transmission Date: 20190205
  Serious: Yes (Hospitalization)
  Sender: FDA-Public Use
  Company Number: GB-TEVA-2018-GB-989241

PATIENT
  Age: 64 Year
  Sex: Female
  Weight: 50 kg

DRUGS (7)
  1. MICONAZOLE. [Concomitant]
     Active Substance: MICONAZOLE
  2. KETOVITE [Concomitant]
     Active Substance: VITAMINS
  3. CEFALEXIN [Concomitant]
     Active Substance: CEPHALEXIN
  4. CARBAMAZEPINE. [Suspect]
     Active Substance: CARBAMAZEPINE
     Indication: EPILEPSY
     Dosage: 800 MILLIGRAM DAILY;
     Route: 048
     Dates: start: 20130101
  5. MIDAZOLAM [Concomitant]
     Active Substance: MIDAZOLAM HYDROCHLORIDE
  6. CLOTRIMAZOLE. [Concomitant]
     Active Substance: CLOTRIMAZOLE
  7. LORATADINE. [Concomitant]
     Active Substance: LORATADINE

REACTIONS (4)
  - Lethargy [Unknown]
  - Fatigue [Unknown]
  - Anaemia [Unknown]
  - Pancytopenia [Not Recovered/Not Resolved]

NARRATIVE: CASE EVENT DATE: 20181120
